FAERS Safety Report 7309630-0 (Version None)
Quarter: 2011Q1

REPORT INFORMATION
  Report Type: 
  Country: None (occurrence: None)
  Receive Date: 20110223
  Receipt Date: 20110211
  Transmission Date: 20110831
  Serious: Yes (Other)
  Sender: FDA-Public Use
  Company Number: US-BAYER-2011-013994

PATIENT
  Age: 52 Year
  Sex: Female

DRUGS (1)
  1. AVELOX [Suspect]
     Indication: INFLUENZA
     Dosage: DAILY DOSE 400 MG
     Route: 048
     Dates: start: 20110201, end: 20110201

REACTIONS (3)
  - BRONCHITIS [None]
  - CARDIAC FLUTTER [None]
  - ABDOMINAL DISCOMFORT [None]
